FAERS Safety Report 8232579-6 (Version None)
Quarter: 2012Q1

REPORT INFORMATION
  Report Type: 
  Country: None (occurrence: None)
  Receive Date: 20120323
  Receipt Date: 20120314
  Transmission Date: 20120608
  Serious: Yes (Other)
  Sender: FDA-Public Use
  Company Number: BE-SANOFI-AVENTIS-2012SA016559

PATIENT
  Age: 6 Year
  Sex: Female

DRUGS (1)
  1. ZOLPIDEM TARTRATE [Suspect]
     Indication: ACCIDENTAL DRUG INTAKE BY CHILD
     Dosage: 1.5 OR 2.5 TABLETS OF 10 MG.
     Route: 048
     Dates: start: 20120312, end: 20120312

REACTIONS (2)
  - SOMNOLENCE [None]
  - ACCIDENTAL DRUG INTAKE BY CHILD [None]
